FAERS Safety Report 7283470-3 (Version None)
Quarter: 2011Q1

REPORT INFORMATION
  Report Type: 
  Country: None (occurrence: None)
  Receive Date: 20110209
  Receipt Date: 20110127
  Transmission Date: 20110831
  Serious: Yes (Hospitalization, Other)
  Sender: FDA-Public Use
  Company Number: PHHY2011FR06635

PATIENT
  Sex: Male
  Weight: 72 kg

DRUGS (6)
  1. COVERSYL [Concomitant]
     Indication: HYPERTENSION
     Dosage: 25 MG, DAILY
  2. ESOMEPRAZOLE [Concomitant]
     Indication: ABDOMINAL PAIN UPPER
     Dosage: 20 MG,DAILY
  3. TASIGNA [Suspect]
     Indication: ACUTE LYMPHOCYTIC LEUKAEMIA
     Dosage: 400 MG, BID
     Route: 048
     Dates: start: 20070126
  4. LYRICA [Concomitant]
     Indication: NEUROPATHY PERIPHERAL
     Dosage: 300 MG, BID
  5. LANTUS [Concomitant]
     Indication: TYPE 2 DIABETES MELLITUS
     Dosage: 38 IU, QD
  6. HUMALOG [Concomitant]
     Indication: TYPE 2 DIABETES MELLITUS
     Dosage: 20 IU, TID

REACTIONS (8)
  - HYPOKINESIA [None]
  - HYPERCHOLESTEROLAEMIA [None]
  - BUNDLE BRANCH BLOCK RIGHT [None]
  - LEFT VENTRICULAR HYPERTROPHY [None]
  - ISCHAEMIC STROKE [None]
  - CEREBRAL ARTERIOSCLEROSIS [None]
  - SPEECH DISORDER [None]
  - DILATATION ATRIAL [None]
